FAERS Safety Report 10252128 (Version 5)
Quarter: 2014Q3

REPORT INFORMATION
  Report Type: Spontaneous
  Country: IT (occurrence: IT)
  Receive Date: 20140623
  Receipt Date: 20140729
  Transmission Date: 20150326
  Serious: Yes (Life-Threatening, Hospitalization, Disabling, Other)
  Sender: FDA-Public Use
  Company Number: PHHY2014IT071592

PATIENT
  Age: 40 Year
  Sex: Female

DRUGS (3)
  1. PREDNISONE. [Suspect]
     Active Substance: PREDNISONE
     Dosage: DAY 1-2: 75 MG /DAY. DAY 3-4: 50 MG /DAY; DAY 5-6: 25 MG /DAY
     Route: 048
  2. METHYLPREDNISOLONE [Suspect]
     Active Substance: METHYLPREDNISOLONE
     Dosage: 1 G, QD
     Route: 042
     Dates: start: 20140503, end: 20140512
  3. GILENYA [Suspect]
     Active Substance: FINGOLIMOD HYDROCHLORIDE
     Indication: MULTIPLE SCLEROSIS
     Dosage: 1 DF, QD
     Route: 048
     Dates: start: 20111108, end: 20140307

REACTIONS (24)
  - Visual acuity reduced [Recovered/Resolved]
  - Gait disturbance [Recovered/Resolved]
  - Disorientation [Recovered/Resolved]
  - Platelet count decreased [Recovered/Resolved]
  - Agitation [Recovered/Resolved]
  - CD4 lymphocytes decreased [Recovered/Resolved]
  - Confusional state [Recovered/Resolved]
  - Heart rate increased [Recovered/Resolved]
  - CD8 lymphocytes decreased [Recovered/Resolved]
  - Ageusia [Recovered/Resolved]
  - T-lymphocyte count decreased [Recovered/Resolved]
  - Brain abscess [Recovered/Resolved]
  - Coma scale abnormal [Recovered/Resolved]
  - Body temperature increased [Recovered/Resolved]
  - Klebsiella infection [Recovered/Resolved]
  - Sedation [Recovered/Resolved]
  - Convulsion [Recovered/Resolved]
  - Status epilepticus [Recovered/Resolved]
  - Motor dysfunction [Recovered/Resolved]
  - Multiple sclerosis relapse [Recovered/Resolved]
  - Asthenia [Recovered/Resolved]
  - Lymphocyte count decreased [Recovered/Resolved]
  - Somnolence [Recovered/Resolved]
  - Immunosuppression [Recovered/Resolved]

NARRATIVE: CASE EVENT DATE: 20140502
